FAERS Safety Report 10155271 (Version 1)
Quarter: 2014Q2

REPORT INFORMATION
  Report Type: Spontaneous
  Country: US (occurrence: US)
  Receive Date: 20140506
  Receipt Date: 20140506
  Transmission Date: 20141212
  Serious: No
  Sender: FDA-Public Use
  Company Number: US-TEVA-402880USA

PATIENT
  Sex: Male

DRUGS (2)
  1. CLARAVIS [Suspect]
     Route: 048
     Dates: start: 20130220
  2. HEPATITIS A VACCINE [Concomitant]

REACTIONS (2)
  - Feeling hot [Unknown]
  - Erythema [Unknown]
